FAERS Safety Report 20138342 (Version 3)
Quarter: 2022Q3

REPORT INFORMATION
  Report Type: Spontaneous
  Country: FR (occurrence: FR)
  Receive Date: 20211202
  Receipt Date: 20220916
  Transmission Date: 20221026
  Serious: Yes (Other)
  Sender: FDA-Public Use
  Company Number: None

PATIENT
  Age: 28 Year
  Sex: Female

DRUGS (3)
  1. CISPLATIN [Suspect]
     Active Substance: CISPLATIN
     Indication: Adenocarcinoma
     Dosage: C1J1 , 100 MG/M2
     Route: 041
     Dates: start: 20211014, end: 20211014
  2. NEULASTA [Suspect]
     Active Substance: PEGFILGRASTIM
     Indication: Neutropenia
     Dosage: 6 MG
     Route: 058
     Dates: start: 20211017, end: 20211017
  3. ETOPOSIDE [Concomitant]
     Active Substance: ETOPOSIDE
     Indication: Adenocarcinoma
     Dosage: C1J1-J2-J3 , 100 MG/M2
     Route: 041
     Dates: start: 20210914, end: 20210916

REACTIONS (1)
  - Extremity necrosis [Recovering/Resolving]

NARRATIVE: CASE EVENT DATE: 20211024
